FAERS Safety Report 8190394-6 (Version None)
Quarter: 2012Q1

REPORT INFORMATION
  Report Type: 
  Country: None (occurrence: None)
  Receive Date: 20120221
  Receipt Date: 20111218
  Transmission Date: 20120608
  Serious: No
  Sender: FDA-Public Use
  Company Number: 1000026359

PATIENT
  Age: 55 Year
  Sex: Female

DRUGS (1)
  1. VIIBRYD [Suspect]
     Indication: DEPRESSION
     Dosage: 10 MG (10 MG, 1 IN 1 D), ORAL
     Route: 048
     Dates: start: 20110101, end: 20110101

REACTIONS (6)
  - GASTROINTESTINAL DISORDER [None]
  - MUSCLE SPASMS [None]
  - ASTHENIA [None]
  - NIGHTMARE [None]
  - EMOTIONAL DISORDER [None]
  - PARAESTHESIA [None]
